FAERS Safety Report 15928303 (Version 1)
Quarter: 2019Q1

REPORT INFORMATION
  Report Type: Spontaneous
  Country: GB (occurrence: GB)
  Receive Date: 20190206
  Receipt Date: 20190206
  Transmission Date: 20190417
  Serious: Yes (Hospitalization, Other)
  Sender: FDA-Public Use
  Company Number: GB-MYLANLABS-2019M1009685

PATIENT
  Age: 19 Year
  Sex: Female

DRUGS (1)
  1. CLOZARIL [Suspect]
     Active Substance: CLOZAPINE
     Indication: SCHIZOPHRENIA
     Dosage: UNK
     Route: 048
     Dates: start: 20181018

REACTIONS (3)
  - Haemoglobin decreased [Unknown]
  - Intentional self-injury [Unknown]
  - Infection [Unknown]

NARRATIVE: CASE EVENT DATE: 201901
